FAERS Safety Report 6201167-5 (Version None)
Quarter: 2009Q2

REPORT INFORMATION
  Report Type: 
  Country: None (occurrence: None)
  Receive Date: 20090526
  Receipt Date: 20090519
  Transmission Date: 20091009
  Serious: Yes (Other)
  Sender: FDA-Public Use
  Company Number: US-JNJFOC-20090504782

PATIENT
  Sex: Female
  Weight: 39.92 kg

DRUGS (11)
  1. FENTANYL TRANSDERMAL SYSTEM [Suspect]
     Route: 062
  2. FENTANYL TRANSDERMAL SYSTEM [Suspect]
     Indication: BACK PAIN
     Route: 062
  3. CELEBREX [Concomitant]
     Indication: ARTHRITIS
     Route: 048
  4. ZOLOFT [Concomitant]
     Indication: ANTIDEPRESSANT THERAPY
     Route: 048
  5. ATIVAN [Concomitant]
     Indication: NEUROPATHY PERIPHERAL
     Route: 048
  6. PRILOSEC [Concomitant]
     Indication: DYSPEPSIA
     Route: 048
  7. FLONASE [Concomitant]
     Indication: HOUSE DUST ALLERGY
     Route: 045
  8. SYNTHROID [Concomitant]
     Indication: HYPOTHYROIDISM
     Route: 048
  9. SOMA [Concomitant]
     Indication: MUSCLE RELAXANT THERAPY
     Route: 048
  10. VICODIN [Concomitant]
     Indication: PAIN
     Dosage: 7.5MG/750MG
     Route: 048
  11. CLARITIN [Concomitant]
     Indication: HOUSE DUST ALLERGY
     Route: 048

REACTIONS (4)
  - APPLICATION SITE PRURITUS [None]
  - BACK PAIN [None]
  - HERPES ZOSTER [None]
  - SPINAL COMPRESSION FRACTURE [None]
